FAERS Safety Report 12838166 (Version 3)
Quarter: 2017Q4

REPORT INFORMATION
  Report Type: Report from Study
  Country: BR (occurrence: BR)
  Receive Date: 20161012
  Receipt Date: 20171226
  Transmission Date: 20180320
  Serious: Yes (Other)
  Sender: FDA-Public Use
  Company Number: PHHY2015BR060715

PATIENT
  Age: 64 Year
  Sex: Female
  Weight: 65 kg

DRUGS (3)
  1. AFINITOR [Suspect]
     Active Substance: EVEROLIMUS
     Indication: NEUROENDOCRINE TUMOUR
     Dosage: 10 MG, UNK
     Route: 065
  2. SANDOSTATIN LAR DEPOT [Suspect]
     Active Substance: OCTREOTIDE ACETATE
     Indication: NEUROENDOCRINE TUMOUR
     Dosage: 10 MG VIAL, 1 DF, QMO (EVERY 28 DAYS, ONCE A MONTH)
     Route: 030
     Dates: start: 201005, end: 201602
  3. SANDOSTATIN LAR DEPOT [Suspect]
     Active Substance: OCTREOTIDE ACETATE
     Indication: METASTASES TO LIVER
     Dosage: 30 MG, UNK
     Route: 030
     Dates: start: 20160623

REACTIONS (37)
  - Head discomfort [Unknown]
  - Vomiting [Not Recovered/Not Resolved]
  - Epistaxis [Recovered/Resolved]
  - Muscle spasms [Not Recovered/Not Resolved]
  - Disturbance in attention [Unknown]
  - Depression [Unknown]
  - Visual impairment [Unknown]
  - Fatigue [Unknown]
  - Aphthous ulcer [Recovered/Resolved]
  - Joint swelling [Recovering/Resolving]
  - Malignant neoplasm progression [Not Recovered/Not Resolved]
  - Gallbladder disorder [Unknown]
  - Blood cholesterol increased [Not Recovered/Not Resolved]
  - Nodule [Unknown]
  - Oral pain [Unknown]
  - Nausea [Unknown]
  - Tachycardia [Unknown]
  - Weight decreased [Recovered/Resolved]
  - Urticaria [Unknown]
  - Headache [Unknown]
  - Abdominal pain [Recovered/Resolved]
  - Nail growth abnormal [Unknown]
  - Fatigue [Recovered/Resolved]
  - Diarrhoea [Recovered/Resolved]
  - Dyspepsia [Unknown]
  - Rash [Recovered/Resolved]
  - Oncologic complication [Unknown]
  - Genital herpes [Recovered/Resolved]
  - Nail discolouration [Unknown]
  - Onychoclasis [Unknown]
  - Dyspnoea [Recovered/Resolved]
  - Malaise [Unknown]
  - Diarrhoea [Unknown]
  - Pruritus [Unknown]
  - Gallbladder pain [Unknown]
  - Sluggishness [Unknown]
  - Eating disorder [Unknown]

NARRATIVE: CASE EVENT DATE: 20140511
